FAERS Safety Report 5401488-X (Version None)
Quarter: 2007Q3

REPORT INFORMATION
  Report Type: 
  Country: None (occurrence: None)
  Receive Date: 20070731
  Receipt Date: 20060829
  Transmission Date: 20080115
  Serious: No
  Sender: FDA-Public Use
  Company Number: A0618542A

PATIENT
  Age: 65 Year
  Sex: Female

DRUGS (1)
  1. DYAZIDE [Suspect]
     Indication: MENIERE'S DISEASE
     Route: 048

REACTIONS (1)
  - BLOOD PRESSURE FLUCTUATION [None]
